FAERS Safety Report 9301829 (Version 1)
Quarter: 2013Q2

REPORT INFORMATION
  Report Type: Spontaneous
  Country: DE (occurrence: DE)
  Receive Date: 20130521
  Receipt Date: 20130521
  Transmission Date: 20140414
  Serious: Yes (Congenital Anomaly)
  Sender: FDA-Public Use
  Company Number: DE-MYLANLABS-2013S1010118

PATIENT
  Age: 0 Year
  Sex: Male
  Weight: 3.18 kg

DRUGS (3)
  1. RAMIPRIL [Suspect]
     Dosage: 5 [MG/D ]
     Route: 064
  2. VELNATAL PLUS [Concomitant]
     Indication: PROPHYLAXIS OF NEURAL TUBE DEFECT
     Route: 064
  3. L-THYROXIN [Concomitant]
     Route: 064

REACTIONS (7)
  - Exposure during pregnancy [Unknown]
  - Ventricular septal defect [Recovering/Resolving]
  - Talipes [Unknown]
  - Pneumothorax [Recovered/Resolved]
  - Pneumonia [Recovered/Resolved]
  - Patent ductus arteriosus [Unknown]
  - Atrial septal defect [Unknown]
